FAERS Safety Report 5500776-6 (Version None)
Quarter: 2007Q4

REPORT INFORMATION
  Report Type: 
  Country: None (occurrence: None)
  Receive Date: 20071029
  Receipt Date: 20071026
  Transmission Date: 20080405
  Serious: Yes (Death)
  Sender: FDA-Public Use
  Company Number: A0590611A

PATIENT
  Age: 60 Year
  Sex: Male
  Weight: 90.9 kg

DRUGS (1)
  1. PAROXETINE HCL [Suspect]
     Indication: DEPRESSION
     Dosage: 20MG PER DAY
     Route: 048
     Dates: start: 20031222, end: 20040127

REACTIONS (17)
  - ABNORMAL BEHAVIOUR [None]
  - AFFECT LABILITY [None]
  - AKATHISIA [None]
  - ANOREXIA [None]
  - COMPLETED SUICIDE [None]
  - FEAR OF DEATH [None]
  - FLAT AFFECT [None]
  - FORMICATION [None]
  - HYPERHIDROSIS [None]
  - MOOD ALTERED [None]
  - NERVOUSNESS [None]
  - NIGHT SWEATS [None]
  - POOR PERSONAL HYGIENE [None]
  - PRURITUS [None]
  - PYREXIA [None]
  - SLEEP DISORDER [None]
  - SOCIAL AVOIDANT BEHAVIOUR [None]
